FAERS Safety Report 4312328-4 (Version None)
Quarter: 2004Q1

REPORT INFORMATION
  Report Type: 
  Country: None (occurrence: None)
  Receive Date: 20040305
  Receipt Date: 20040302
  Transmission Date: 20041129
  Serious: Yes (Death, Hospitalization)
  Sender: FDA-Public Use
  Company Number: FR-GLAXOSMITHKLINE-B0325325A

PATIENT
  Age: 71 Year
  Sex: Male

DRUGS (1)
  1. AUGMENTIN [Suspect]
     Route: 048
     Dates: start: 20030101, end: 20030101

REACTIONS (4)
  - INFLAMMATION [None]
  - RASH MACULO-PAPULAR [None]
  - SUDDEN DEATH [None]
  - TOXIC SKIN ERUPTION [None]
